FAERS Safety Report 6981579-2 (Version None)
Quarter: 2010Q3

REPORT INFORMATION
  Report Type: 
  Country: None (occurrence: None)
  Receive Date: 20100914
  Receipt Date: 20100903
  Transmission Date: 20110219
  Serious: Yes (Hospitalization)
  Sender: FDA-Public Use
  Company Number: FR-AMGEN-QUU436984

PATIENT
  Sex: Male

DRUGS (9)
  1. ENBREL [Suspect]
     Indication: PSORIATIC ARTHROPATHY
     Dosage: UNKNOWN
     Route: 058
     Dates: start: 20050101, end: 20100815
  2. SEROPLEX [Concomitant]
     Dosage: UNKNOWN
     Route: 048
  3. OMEPRAZOLE [Concomitant]
     Dosage: UNKNOWN
     Route: 048
  4. TRANSIPEG [Concomitant]
     Dosage: UNKNOWN
     Route: 048
  5. IRBESARTAN [Concomitant]
     Dosage: UNKNOWN
     Route: 048
  6. OXYCONTIN [Concomitant]
     Dosage: UNKNOWN
     Route: 048
  7. OXYCODONE HCL [Concomitant]
     Dosage: UNKNOWN
  8. ALPRAZOLAM [Concomitant]
     Dosage: UNKNOWN
     Route: 048
  9. GAVISCON [Concomitant]
     Dosage: UNKNOWN
     Route: 048

REACTIONS (5)
  - BONE PAIN [None]
  - CYTOLYTIC HEPATITIS [None]
  - HEPATOMEGALY [None]
  - LUNG CANCER METASTATIC [None]
  - OSTEITIS [None]
